FAERS Safety Report 20043327 (Version 1)
Quarter: 2021Q4

REPORT INFORMATION
  Report Type: Spontaneous
  Country: US (occurrence: US)
  Receive Date: 20211108
  Receipt Date: 20211108
  Transmission Date: 20220303
  Serious: Yes (Hospitalization)
  Sender: FDA-Public Use
  Company Number: US-PERRIGO-21US002589

PATIENT
  Age: 41 Year
  Sex: Female
  Weight: 52.608 kg

DRUGS (13)
  1. MESALAMINE [Suspect]
     Active Substance: MESALAMINE
     Indication: Colitis ulcerative
     Dosage: 4 G, PRN, NIGHTLY
     Route: 054
     Dates: start: 202003, end: 202101
  2. MESALAMINE [Suspect]
     Active Substance: MESALAMINE
     Dosage: 4 G, QD, AT NIGHT
     Route: 054
     Dates: start: 202101, end: 20210213
  3. MESALAMINE [Concomitant]
     Active Substance: MESALAMINE
     Indication: Colitis ulcerative
     Dosage: UNK, UNK
     Route: 054
     Dates: start: 202004, end: 20210206
  4. UCERIS [Concomitant]
     Active Substance: BUDESONIDE
     Indication: Colitis ulcerative
     Dosage: UNK, UNK
     Route: 054
     Dates: start: 202011, end: 20210131
  5. UCERIS [Concomitant]
     Active Substance: BUDESONIDE
     Dosage: UNK, UNK
     Route: 054
     Dates: start: 20210203, end: 20210213
  6. COLAZAL [Concomitant]
     Active Substance: BALSALAZIDE DISODIUM
     Indication: Colitis ulcerative
     Dosage: 4 CAPSULES, TID
     Route: 048
     Dates: start: 202010, end: 20210131
  7. COLAZAL [Concomitant]
     Active Substance: BALSALAZIDE DISODIUM
     Dosage: 3 CAPSULES, BID
     Route: 048
     Dates: start: 2016, end: 202009
  8. COLAZAL [Concomitant]
     Active Substance: BALSALAZIDE DISODIUM
     Dosage: 4 CAPSULES, TID
     Route: 048
     Dates: start: 20210203, end: 20210213
  9. VEDOLIZUMAB [Concomitant]
     Active Substance: VEDOLIZUMAB
     Indication: Colitis ulcerative
     Dosage: UNKNOWN, EVERY 8 WEEKS
     Route: 042
     Dates: start: 201910, end: 202008
  10. VEDOLIZUMAB [Concomitant]
     Active Substance: VEDOLIZUMAB
     Dosage: UNK, UNK
     Route: 042
     Dates: start: 20200923, end: 20200923
  11. VEDOLIZUMAB [Concomitant]
     Active Substance: VEDOLIZUMAB
     Dosage: UNKNOWN, EVERY 4 WEEKS
     Route: 042
     Dates: start: 202010, end: 20210216
  12. MULTIVITAMIN                       /07504101/ [Concomitant]
     Indication: Supplementation therapy
     Dosage: UNK, UNK
     Route: 048
     Dates: start: 202003
  13. VITAMIN D                          /00107901/ [Concomitant]
     Indication: Supplementation therapy
     Dosage: UNK, UNK
     Route: 048
     Dates: start: 202003

REACTIONS (6)
  - Abdominal pain [Recovered/Resolved]
  - Proctalgia [Recovered/Resolved]
  - Nausea [Recovered/Resolved]
  - Vomiting [Recovered/Resolved]
  - Product dose omission issue [Recovered/Resolved]
  - Incorrect product administration duration [Recovered/Resolved]

NARRATIVE: CASE EVENT DATE: 20200301
